FAERS Safety Report 8905719 (Version 4)
Quarter: 2012Q4

REPORT INFORMATION
  Report Type: 
  Country: JP (occurrence: JP)
  Receive Date: 20121109
  Receipt Date: 20121207
  Transmission Date: 20130627
  Serious: Yes (Hospitalization)
  Sender: FDA-Public Use
  Company Number: JP-OTSUKA-JP-2012-16768

PATIENT
  Age: 85 Year
  Sex: Male
  Weight: 63 kg

DRUGS (19)
  1. SAMSCA [Suspect]
     Indication: CARDIAC FAILURE
     Dosage: 7.5 Mg milligram(s), qd
     Route: 048
     Dates: start: 20121015, end: 20121101
  2. GLUCOSE [Concomitant]
     Indication: FLUID REPLACEMENT
     Dosage: 500 ml millilitre(s), qd
     Route: 042
     Dates: start: 20121011, end: 20121011
  3. CEFTRIAXONE NA [Concomitant]
     Indication: PNEUMONIA
     Dosage: 2 G gram(s), qd
     Route: 042
     Dates: start: 20121011, end: 20121013
  4. SEISHOKU [Concomitant]
     Indication: PNEUMONIA
     Dosage: 100 ml millilitre(s), qd
     Route: 042
     Dates: start: 20121011, end: 20121013
  5. SEISHOKU [Concomitant]
     Dosage: 50 ml millilitre(s), bid
     Route: 042
     Dates: start: 20121013, end: 20121016
  6. SEISHOKU [Concomitant]
     Dosage: 50 ml millilitre(s), bid
     Route: 042
     Dates: start: 20121017, end: 20121023
  7. HANP [Concomitant]
     Indication: CARDIAC FAILURE
     Dosage: 5000 mcg, qd
     Route: 042
     Dates: start: 20121011, end: 20121101
  8. INOVAN [Concomitant]
     Indication: CARDIAC FAILURE
     Dosage: 225 Mg milligram(s), qd
     Route: 042
     Dates: start: 20121011, end: 20121101
  9. FUROSEMIDE [Concomitant]
     Indication: CARDIAC FAILURE
     Dosage: 20 Mg milligram(s), qd
     Route: 042
     Dates: start: 20121011, end: 20121101
  10. SOLDEM 3A [Concomitant]
     Indication: FLUID REPLACEMENT
     Dosage: 720 ml millilitre(s), qd
     Route: 042
     Dates: start: 20121012, end: 20121016
  11. TIENAM [Concomitant]
     Indication: PNEUMONIA
     Dosage: 500 Mg milligram(s), bid
     Route: 042
     Dates: start: 20121013, end: 20121016
  12. MAINTENACE MEDIUM [Concomitant]
     Dosage: (fluid intake + drip infusion) 950 ml millilitre(s), daily dose
     Route: 041
     Dates: start: 20121014, end: 20121015
  13. MAINTENACE MEDIUM [Concomitant]
     Dosage: (fluid intake + drip infusion) 1196 ml millilitre(s), daily dose
     Route: 041
     Dates: start: 20121016, end: 20121016
  14. MAINTENACE MEDIUM [Concomitant]
     Dosage: (fluid intake + drip infusion) 1350 ml millilitre(s), daily dose
     Route: 041
     Dates: start: 20121017, end: 20121017
  15. MAINTENACE MEDIUM [Concomitant]
     Dosage: (fluid intake + drip infusion) 1330 ml millilitre(s), daily dose
     Route: 041
     Dates: start: 20121018, end: 20121018
  16. MAINTENACE MEDIUM [Concomitant]
     Dosage: (fluid intake + drip infusion) 990 ml millilitre(s), daily dose
     Route: 041
     Dates: start: 20121019, end: 20121019
  17. MAINTENACE MEDIUM [Concomitant]
     Dosage: (fluid intake + drip infusion) 1670 ml millilitre(s), daily dose
     Route: 041
     Dates: start: 20121020, end: 20121020
  18. MAINTENACE MEDIUM [Concomitant]
     Dosage: (fluid intake + drip infusion) 1690 ml millilitre(s), daily dose
     Route: 041
     Dates: start: 20121021, end: 20121021
  19. SULBACILLIN [Concomitant]
     Indication: PNEUMONIA
     Dosage: 1.5 G gram(s), bid
     Route: 042
     Dates: start: 20121017, end: 20121023

REACTIONS (1)
  - Hypernatraemia [Recovered/Resolved]
